FAERS Safety Report 6647513-X (Version None)
Quarter: 2010Q1

REPORT INFORMATION
  Report Type: 
  Country: None (occurrence: None)
  Receive Date: 20100323
  Receipt Date: 20100319
  Transmission Date: 20100710
  Serious: Yes (Hospitalization, Other)
  Sender: FDA-Public Use
  Company Number: US-MERCK-0708USA05623

PATIENT
  Age: 57 Year
  Sex: Female
  Weight: 59 kg

DRUGS (5)
  1. FOSAMAX [Suspect]
     Indication: OSTEOPENIA
     Route: 048
     Dates: start: 20031112
  2. SYNTHROID [Concomitant]
     Indication: HYPOTHYROIDISM
     Route: 065
     Dates: start: 19900101
  3. VIVELLE [Concomitant]
     Indication: HORMONE REPLACEMENT THERAPY
     Route: 065
     Dates: start: 19930101, end: 20060515
  4. ULTRACET [Concomitant]
     Route: 065
  5. ACIPHEX [Concomitant]
     Route: 065

REACTIONS (5)
  - ALVEOLAR OSTEITIS [None]
  - FRACTURE [None]
  - JOINT DISLOCATION [None]
  - ORAL INFECTION [None]
  - OSTEONECROSIS [None]
